FAERS Safety Report 9383392 (Version 1)
Quarter: 2013Q3

REPORT INFORMATION
  Report Type: Spontaneous
  Country: GB (occurrence: GB)
  Receive Date: 20130704
  Receipt Date: 20130704
  Transmission Date: 20140515
  Serious: Yes (Hospitalization)
  Sender: FDA-Public Use
  Company Number: GB-009507513-1307GBR000832

PATIENT
  Age: 49 Year
  Sex: Female
  Weight: 59 kg

DRUGS (4)
  1. MAXALT 5MG TABLETS [Suspect]
     Dosage: 10 MG, UNK
     Route: 048
     Dates: start: 20130103
  2. MAXALT 5MG TABLETS [Interacting]
     Dosage: UNK
     Route: 048
     Dates: start: 20040102
  3. BOTOX [Interacting]
     Indication: MIGRAINE
     Dosage: UNK
     Dates: start: 201301, end: 201301
  4. BOTOX [Interacting]
     Dosage: UNK
     Dates: start: 201305, end: 201305

REACTIONS (2)
  - Drug interaction [Unknown]
  - Pruritus [Not Recovered/Not Resolved]
